FAERS Safety Report 25182243 (Version 1)
Quarter: 2025Q2

REPORT INFORMATION
  Report Type: Spontaneous
  Country: US (occurrence: US)
  Receive Date: 20250410
  Receipt Date: 20250410
  Transmission Date: 20250716
  Serious: No
  Sender: KINIKSA PHARMACEUTICALS
  Company Number: US-Kiniksa Pharmaceuticals Ltd.-2024KPU000591

PATIENT
  Age: 61 Year
  Sex: Male

DRUGS (2)
  1. ARCALYST [Suspect]
     Active Substance: RILONACEPT
     Indication: Pericarditis
     Dates: start: 20240409, end: 20240409
  2. ARCALYST [Suspect]
     Active Substance: RILONACEPT

REACTIONS (10)
  - Injection site pain [Unknown]
  - Fatigue [Unknown]
  - Product dose omission issue [Unknown]
  - Product temperature excursion issue [Unknown]
  - Product reconstitution quality issue [Unknown]
  - Injection site erythema [Recovered/Resolved]
  - Injection site rash [Recovered/Resolved]
  - Injection site inflammation [Recovered/Resolved]
  - Heart rate increased [Unknown]
  - Unevaluable event [Unknown]

NARRATIVE: CASE EVENT DATE: 20240101
